FAERS Safety Report 7991585-7 (Version None)
Quarter: 2011Q4

REPORT INFORMATION
  Report Type: 
  Country: None (occurrence: None)
  Receive Date: 20111219
  Receipt Date: 20110725
  Transmission Date: 20120403
  Serious: No
  Sender: FDA-Public Use
  Company Number: US-ABBOTT-11P-163-0841456-00

PATIENT
  Sex: Male
  Weight: 90.8 kg

DRUGS (2)
  1. ADVICOR [Suspect]
     Indication: DYSLIPIDAEMIA
     Dates: start: 20090101, end: 20110501
  2. NEXIUM [Concomitant]
     Indication: GASTROOESOPHAGEAL REFLUX DISEASE

REACTIONS (1)
  - GOUT [None]
